FAERS Safety Report 16842548 (Version 1)
Quarter: 2019Q3

REPORT INFORMATION
  Report Type: Spontaneous
  Country: US (occurrence: US)
  Receive Date: 20190801
  Receipt Date: 20190801
  Transmission Date: 20191005
  Serious: No
  Sender: FDA-Public Use
  Company Number: None

PATIENT
  Age: 58 Year
  Sex: Female

DRUGS (1)
  1. COPAXONE [Suspect]
     Active Substance: GLATIRAMER ACETATE
     Route: 058
     Dates: start: 201810

REACTIONS (4)
  - Product dose omission [None]
  - Muscle spasticity [None]
  - Condition aggravated [None]
  - Product storage error [None]

NARRATIVE: CASE EVENT DATE: 20190801
